FAERS Safety Report 5581886-4 (Version None)
Quarter: 2008Q1

REPORT INFORMATION
  Report Type: 
  Country: None (occurrence: None)
  Receive Date: 20080104
  Receipt Date: 20071228
  Transmission Date: 20080703
  Serious: Yes (Other)
  Sender: FDA-Public Use
  Company Number: PHEH2007US16216

PATIENT
  Age: 97 Year
  Sex: Female

DRUGS (1)
  1. MIACALCIN [Suspect]
     Route: 045

REACTIONS (2)
  - BLINDNESS [None]
  - DEAFNESS [None]
